FAERS Safety Report 4289743-0 (Version None)
Quarter: 2004Q1

REPORT INFORMATION
  Report Type: 
  Country: None (occurrence: None)
  Receive Date: 20040209
  Receipt Date: 20040115
  Transmission Date: 20041129
  Serious: Yes (Other)
  Sender: FDA-Public Use
  Company Number: A03200301037

PATIENT

DRUGS (1)
  1. AMBIEN [Suspect]
     Dosage: 5 MG - ORAL
     Route: 048

REACTIONS (2)
  - CARDIOMYOPATHY [None]
  - MITRAL VALVE DISEASE [None]
